FAERS Safety Report 14431115 (Version 2)
Quarter: 2018Q1

REPORT INFORMATION
  Report Type: Report from Study
  Country: PL (occurrence: PL)
  Receive Date: 20180124
  Receipt Date: 20180131
  Transmission Date: 20180509
  Serious: Yes (Hospitalization)
  Sender: FDA-Public Use
  Company Number: PL-ROCHE-1555018

PATIENT
  Age: 31 Year
  Sex: Male
  Weight: 65 kg

DRUGS (45)
  1. OCRELIZUMAB. [Suspect]
     Active Substance: OCRELIZUMAB
     Dosage: FREQUENCY PER PROTOCOL: TWO INFUSIONS SEPARATED BY 14 DAYS FOR THE FIRST 24 WEEKS, FOLLOWED BY SINGL
     Route: 042
     Dates: start: 20141028, end: 20141028
  2. OCRELIZUMAB. [Suspect]
     Active Substance: OCRELIZUMAB
     Dosage: WEEK 48
     Route: 042
     Dates: start: 20150922, end: 20150922
  3. KIRKLAND SIGNATURE ALLER TEC ALLERGY [Concomitant]
     Active Substance: CETIRIZINE HYDROCHLORIDE
     Route: 065
     Dates: start: 20121213
  4. PARACETAMOL [Concomitant]
     Active Substance: ACETAMINOPHEN
     Dosage: SUBSEQUENTLY RECEIVED ON 01/MAR/2016, 17/AUG/2016, 31/JAN/2017, 18/JUL/2017 AND 03/JAN/2018
     Route: 065
     Dates: start: 20150922
  5. METHYLPREDNISOLONE. [Concomitant]
     Active Substance: METHYLPREDNISOLONE
     Route: 065
     Dates: start: 20121213
  6. METHYLPREDNISOLONE. [Concomitant]
     Active Substance: METHYLPREDNISOLONE
     Dosage: SUBSEQUENTLY RECEIVED ON 01/MAR/2016, 17/AUG/2016, 31/JAN/2017, 18/JUL/2017 AND 03/JAN/2018
     Route: 065
     Dates: start: 20150922
  7. OCRELIZUMAB. [Suspect]
     Active Substance: OCRELIZUMAB
     Dosage: FREQUENCY PER PROTOCOL: TWO INFUSIONS SEPARATED BY 14 DAYS FOR THE FIRST 24 WEEKS, FOLLOWED BY SINGL
     Route: 042
     Dates: start: 20121213, end: 20121213
  8. OCRELIZUMAB. [Suspect]
     Active Substance: OCRELIZUMAB
     Dosage: FREQUENCY PER PROTOCOL: TWO INFUSIONS SEPARATED BY 14 DAYS FOR THE FIRST 24 WEEKS, FOLLOWED BY SINGL
     Route: 042
     Dates: start: 20131031, end: 20131031
  9. OCRELIZUMAB. [Suspect]
     Active Substance: OCRELIZUMAB
     Dosage: WEEK 144
     Route: 042
     Dates: start: 20170718, end: 20170718
  10. SIRDALUD [Concomitant]
     Active Substance: TIZANIDINE
     Route: 065
     Dates: start: 20120905
  11. CEFTRIAXONE. [Concomitant]
     Active Substance: CEFTRIAXONE
     Route: 065
     Dates: start: 20130720, end: 20130809
  12. OCRELIZUMAB. [Suspect]
     Active Substance: OCRELIZUMAB
     Dosage: WEEK 96
     Route: 042
     Dates: start: 20160817, end: 20160817
  13. METHYLPREDNISOLONE. [Concomitant]
     Active Substance: METHYLPREDNISOLONE
     Route: 065
     Dates: start: 20130515
  14. OCRELIZUMAB. [Suspect]
     Active Substance: OCRELIZUMAB
     Indication: RELAPSING-REMITTING MULTIPLE SCLEROSIS
     Dosage: FREQUENCY PER PROTOCOL: TWO INFUSIONS SEPARATED BY 14 DAYS FOR THE FIRST 24 WEEKS, FOLLOWED BY SINGL
     Route: 042
     Dates: start: 20121129, end: 20121129
  15. KIRKLAND SIGNATURE ALLER TEC ALLERGY [Concomitant]
     Active Substance: CETIRIZINE HYDROCHLORIDE
     Route: 065
     Dates: start: 20130515
  16. KIRKLAND SIGNATURE ALLER TEC ALLERGY [Concomitant]
     Active Substance: CETIRIZINE HYDROCHLORIDE
     Route: 065
     Dates: start: 20131031
  17. PARACETAMOL [Concomitant]
     Active Substance: ACETAMINOPHEN
     Indication: PREMEDICATION
     Route: 065
     Dates: start: 20121129
  18. PARACETAMOL [Concomitant]
     Active Substance: ACETAMINOPHEN
     Route: 065
     Dates: start: 20141028
  19. METHYLPREDNISOLONE. [Concomitant]
     Active Substance: METHYLPREDNISOLONE
     Route: 065
     Dates: start: 20140415
  20. METHYLPREDNISOLONE. [Concomitant]
     Active Substance: METHYLPREDNISOLONE
     Route: 065
     Dates: start: 20141014
  21. CEFTRIAXONE. [Concomitant]
     Active Substance: CEFTRIAXONE
     Route: 065
     Dates: start: 20130615, end: 20130621
  22. PLACEBO [Suspect]
     Active Substance: UNSPECIFIED INGREDIENT
     Indication: RELAPSING-REMITTING MULTIPLE SCLEROSIS
     Dosage: SUBSEQUENTLY, RECEIVED ON 25/JAN/2013 AND 20/FEB/2013 (LOT NUMBER: 600604)
     Route: 058
     Dates: start: 20121129
  23. OCRELIZUMAB. [Suspect]
     Active Substance: OCRELIZUMAB
     Dosage: WEEK 120
     Route: 042
     Dates: start: 20170131, end: 20170131
  24. OCRELIZUMAB. [Suspect]
     Active Substance: OCRELIZUMAB
     Dosage: WEEK 168
     Route: 042
     Dates: start: 20180103, end: 20180103
  25. KIRKLAND SIGNATURE ALLER TEC ALLERGY [Concomitant]
     Active Substance: CETIRIZINE HYDROCHLORIDE
     Route: 065
     Dates: start: 20140415
  26. KIRKLAND SIGNATURE ALLER TEC ALLERGY [Concomitant]
     Active Substance: CETIRIZINE HYDROCHLORIDE
     Route: 065
     Dates: start: 20141014
  27. PARACETAMOL [Concomitant]
     Active Substance: ACETAMINOPHEN
     Route: 065
     Dates: start: 20130515
  28. PARACETAMOL [Concomitant]
     Active Substance: ACETAMINOPHEN
     Route: 065
     Dates: start: 20141014
  29. OCRELIZUMAB. [Suspect]
     Active Substance: OCRELIZUMAB
     Indication: RELAPSING-REMITTING MULTIPLE SCLEROSIS
     Dosage: ADMINISTERD AS 300 MG INFUSIONS ON DAYS 1 AND 15 FOR THE FIRST DOSE AND AS A SINGLE INFUSION OF 600
     Route: 042
     Dates: start: 20141014, end: 20141014
  30. KIRKLAND SIGNATURE ALLER TEC ALLERGY [Concomitant]
     Active Substance: CETIRIZINE HYDROCHLORIDE
     Indication: PREMEDICATION
     Route: 065
     Dates: start: 20121129
  31. KIRKLAND SIGNATURE ALLER TEC ALLERGY [Concomitant]
     Active Substance: CETIRIZINE HYDROCHLORIDE
     Route: 065
     Dates: start: 20141028
  32. KIRKLAND SIGNATURE ALLER TEC ALLERGY [Concomitant]
     Active Substance: CETIRIZINE HYDROCHLORIDE
     Dosage: SUBSEQUENTLY RECEIVED ON 01/MAR/2016, 17/AUG/2016, 31/JAN/2017, 18/JUL/2017 AND 03/JAN/2018
     Route: 065
     Dates: start: 20150922
  33. METHYLPREDNISOLONE. [Concomitant]
     Active Substance: METHYLPREDNISOLONE
     Indication: PREMEDICATION
     Route: 065
     Dates: start: 20121129
  34. POLPRAZOL [Concomitant]
     Active Substance: OMEPRAZOLE
     Route: 065
     Dates: start: 20150130
  35. PLACEBO [Suspect]
     Active Substance: UNSPECIFIED INGREDIENT
     Route: 058
     Dates: end: 20141013
  36. PARACETAMOL [Concomitant]
     Active Substance: ACETAMINOPHEN
     Route: 065
     Dates: start: 20121213
  37. AMOTAKS [Concomitant]
     Route: 065
     Dates: start: 20130622, end: 20130705
  38. POLPRAZOL [Concomitant]
     Active Substance: OMEPRAZOLE
     Route: 065
     Dates: start: 20130720, end: 20130809
  39. OCRELIZUMAB. [Suspect]
     Active Substance: OCRELIZUMAB
     Dosage: FREQUENCY PER PROTOCOL: TWO INFUSIONS SEPARATED BY 14 DAYS FOR THE FIRST 24 WEEKS, FOLLOWED BY SINGL
     Route: 042
     Dates: start: 20130515, end: 20130515
  40. OCRELIZUMAB. [Suspect]
     Active Substance: OCRELIZUMAB
     Dosage: WEEK 72
     Route: 042
     Dates: start: 20160301, end: 20160301
  41. PARACETAMOL [Concomitant]
     Active Substance: ACETAMINOPHEN
     Route: 065
     Dates: start: 20131031
  42. PARACETAMOL [Concomitant]
     Active Substance: ACETAMINOPHEN
     Route: 065
     Dates: start: 20140415
  43. METHYLPREDNISOLONE. [Concomitant]
     Active Substance: METHYLPREDNISOLONE
     Route: 065
     Dates: start: 20131031
  44. METHYLPREDNISOLONE. [Concomitant]
     Active Substance: METHYLPREDNISOLONE
     Route: 065
     Dates: start: 20141028
  45. OCRELIZUMAB. [Suspect]
     Active Substance: OCRELIZUMAB
     Dosage: FREQUENCY PER PROTOCOL: TWO INFUSIONS SEPARATED BY 14 DAYS FOR THE FIRST 24 WEEKS, FOLLOWED BY SINGL
     Route: 042
     Dates: start: 20140415, end: 20140415

REACTIONS (1)
  - Thyroiditis subacute [Recovered/Resolved]

NARRATIVE: CASE EVENT DATE: 20150115
